FAERS Safety Report 10209701 (Version 1)
Quarter: 2014Q2

REPORT INFORMATION
  Report Type: Spontaneous
  Country: US (occurrence: US)
  Receive Date: 20140602
  Receipt Date: 20140602
  Transmission Date: 20141212
  Serious: No
  Sender: FDA-Public Use
  Company Number: US-BIOGENIDEC-2014BI050054

PATIENT
  Sex: Female

DRUGS (1)
  1. AVONEX [Suspect]
     Indication: MULTIPLE SCLEROSIS
     Route: 030
     Dates: start: 20130924, end: 20140103

REACTIONS (4)
  - Tremor [Unknown]
  - Hypoaesthesia [Unknown]
  - Muscle spasms [Unknown]
  - Drug ineffective [Unknown]
